FAERS Safety Report 20671400 (Version 1)
Quarter: 2022Q2

REPORT INFORMATION
  Report Type: Other
  Country: DE (occurrence: DE)
  Receive Date: 20220404
  Receipt Date: 20220404
  Transmission Date: 20220721
  Serious: No
  Sender: FDA-Public Use
  Company Number: DE-002147023-NVSC2021DE048832

PATIENT
  Sex: Male

DRUGS (3)
  1. SILDENAFIL [Interacting]
     Active Substance: SILDENAFIL
     Indication: Erectile dysfunction
     Dosage: UNK
     Route: 065
  2. MEKINIST [Interacting]
     Active Substance: TRAMETINIB DIMETHYL SULFOXIDE
     Indication: Malignant melanoma
     Dosage: 2 MG, QD
     Route: 065
     Dates: start: 202102
  3. TAFINLAR [Interacting]
     Active Substance: DABRAFENIB MESYLATE
     Indication: Malignant melanoma
     Dosage: 150 MG, BID
     Route: 065
     Dates: start: 202102

REACTIONS (8)
  - Solar lentigo [Unknown]
  - Pyrexia [Unknown]
  - Hyperhidrosis [Unknown]
  - C-reactive protein increased [Unknown]
  - Feeling abnormal [Unknown]
  - Chills [Recovering/Resolving]
  - Spermatogenesis abnormal [Unknown]
  - Drug interaction [Unknown]

NARRATIVE: CASE EVENT DATE: 20210201
